FAERS Safety Report 9125518 (Version 2)
Quarter: 2013Q2

REPORT INFORMATION
  Report Type: Spontaneous
  Country: NL (occurrence: NL)
  Receive Date: 20130227
  Receipt Date: 20130617
  Transmission Date: 20140414
  Serious: Yes (Hospitalization)
  Sender: FDA-Public Use
  Company Number: NL-GLAXOSMITHKLINE-B0870742A

PATIENT
  Sex: Male

DRUGS (2)
  1. MALARONE [Suspect]
     Indication: PRODUCT USED FOR UNKNOWN INDICATION
     Route: 065
     Dates: start: 2010, end: 2013
  2. YELLOW FEVER VACCINE [Suspect]
     Indication: PROPHYLAXIS
     Route: 065

REACTIONS (4)
  - Dyspnoea [Recovered/Resolved]
  - Lip swelling [Unknown]
  - Local swelling [Unknown]
  - Local swelling [Unknown]
